FAERS Safety Report 7405653-1 (Version None)
Quarter: 2011Q2

REPORT INFORMATION
  Report Type: 
  Country: None (occurrence: None)
  Receive Date: 20110406
  Receipt Date: 20110406
  Transmission Date: 20111010
  Serious: No
  Sender: FDA-Public Use
  Company Number: None

PATIENT
  Age: 55 Year
  Sex: Male
  Weight: 68.9467 kg

DRUGS (1)
  1. AMITRIPTYLINE HCL 100MG TAB [Suspect]

REACTIONS (7)
  - CONVULSION [None]
  - HALLUCINATION [None]
  - MEDICATION ERROR [None]
  - WRONG DRUG ADMINISTERED [None]
  - DRUG DISPENSING ERROR [None]
  - OVERDOSE [None]
  - ANXIETY [None]
